FAERS Safety Report 25992409 (Version 1)
Quarter: 2025Q4

REPORT INFORMATION
  Report Type: Spontaneous
  Country: US (occurrence: None)
  Receive Date: 20251103
  Receipt Date: 20251103
  Transmission Date: 20260118
  Serious: Yes (Other)
  Sender: FDA-CTU
  Company Number: None

PATIENT
  Age: 79 Year
  Sex: Male
  Weight: 103.5 kg

DRUGS (8)
  1. NEURONTIN [Suspect]
     Active Substance: GABAPENTIN
     Indication: Pudendal canal syndrome
     Dosage: OTHER QUANTITY : 1 CAPSULE(S);?FREQUENCY : TWICE A DAY;?
     Route: 048
     Dates: start: 20250811, end: 20250825
  2. Metoprlol [Concomitant]
  3. chlorthalide [Concomitant]
  4. ALLOPURINOL [Concomitant]
     Active Substance: ALLOPURINOL
  5. TRAZODONE [Concomitant]
     Active Substance: TRAZODONE HYDROCHLORIDE
  6. LISINOPRIL [Concomitant]
     Active Substance: LISINOPRIL
  7. CPAP device [Concomitant]
  8. aspirin, 325mg [Concomitant]

REACTIONS (4)
  - Peripheral swelling [None]
  - Joint swelling [None]
  - Peripheral swelling [None]
  - Cognitive disorder [None]

NARRATIVE: CASE EVENT DATE: 20250825
